FAERS Safety Report 24995295 (Version 3)
Quarter: 2025Q1

REPORT INFORMATION
  Report Type: Spontaneous
  Country: JP (occurrence: JP)
  Receive Date: 20250221
  Receipt Date: 20250326
  Transmission Date: 20250409
  Serious: Yes (Hospitalization, Disabling, Other)
  Sender: MERZ
  Company Number: AE202501-0258

PATIENT

DRUGS (22)
  1. XEOMIN [Suspect]
     Active Substance: INCOBOTULINUMTOXINA
     Indication: Muscle spasticity
     Dosage: 800 INTERNATIONAL UNIT
     Route: 030
     Dates: start: 202310, end: 202310
  2. XEOMIN [Suspect]
     Active Substance: INCOBOTULINUMTOXINA
     Indication: Muscle spasticity
  3. XEOMIN [Suspect]
     Active Substance: INCOBOTULINUMTOXINA
  4. XEOMIN [Suspect]
     Active Substance: INCOBOTULINUMTOXINA
     Dosage: 800 INTERNATIONAL UNIT
     Route: 030
     Dates: start: 20241227, end: 20241227
  5. CLENBUTEROL HYDROCHLORIDE [Concomitant]
     Active Substance: CLENBUTEROL HYDROCHLORIDE
     Dosage: 10 MICROGRAM
     Route: 048
  6. CLENBUTEROL HYDROCHLORIDE [Concomitant]
     Active Substance: CLENBUTEROL HYDROCHLORIDE
     Route: 048
  7. ELDECALCITOL [Concomitant]
     Active Substance: ELDECALCITOL
  8. NEXIUM [Concomitant]
     Active Substance: ESOMEPRAZOLE MAGNESIUM
     Dosage: 10 MILLIGRAM
     Route: 048
  9. AMLODIPINE BESYLATE [Concomitant]
     Active Substance: AMLODIPINE BESYLATE
     Dosage: 5 MILLIGRAM
     Route: 048
  10. ATORVASTATIN [Concomitant]
     Active Substance: ATORVASTATIN
     Dosage: 10 MILLIGRAM
     Route: 048
  11. MAGNESIUM OXIDE [Concomitant]
     Active Substance: MAGNESIUM OXIDE
     Dosage: 660 MILLIGRAM
     Route: 048
  12. AMITIZA [Concomitant]
     Active Substance: LUBIPROSTONE
     Dosage: 24 MICROGRAM
     Route: 048
  13. CARBOCYSTEINE [Concomitant]
     Active Substance: CARBOCYSTEINE
     Dosage: 500 MILLIGRAM
     Route: 048
  14. HERBALS [Concomitant]
     Active Substance: HERBALS
     Dosage: 1 DOSAGE FORM
     Route: 048
  15. VESICARE [Concomitant]
     Active Substance: SOLIFENACIN SUCCINATE
     Dosage: 5 MILLIGRAM
     Route: 048
  16. MIRABEGRON [Concomitant]
     Active Substance: MIRABEGRON
     Dosage: 25 MILLIGRAM
     Route: 048
  17. HERBALS [Concomitant]
     Active Substance: HERBALS
     Dosage: 1 DOSAGE FORM
     Route: 048
  18. TRAZODONE HYDROCHLORIDE [Concomitant]
     Active Substance: TRAZODONE HYDROCHLORIDE
     Dosage: 25 MILLIGRAM
     Route: 048
  19. DAYVIGO [Concomitant]
     Active Substance: LEMBOREXANT
     Dosage: 5 MILLIGRAM
     Route: 048
  20. LOXOPROFEN SODIUM [Concomitant]
     Active Substance: LOXOPROFEN SODIUM
     Dosage: 60 MILLIGRAM
     Route: 048
  21. ETIZOLAM [Concomitant]
     Active Substance: ETIZOLAM
     Dosage: 0.5 MILLIGRAM
     Route: 048
  22. ACETAMINOPHEN [Concomitant]
     Active Substance: ACETAMINOPHEN

REACTIONS (6)
  - Paralysis [Recovered/Resolved]
  - Myasthenia gravis [Unknown]
  - Dysphagia [Unknown]
  - Joint range of motion decreased [Recovering/Resolving]
  - Grip strength decreased [Recovering/Resolving]
  - Overdose [Unknown]

NARRATIVE: CASE EVENT DATE: 20250124
